FAERS Safety Report 21140430 (Version 1)
Quarter: 2022Q3

REPORT INFORMATION
  Report Type: Spontaneous
  Country: CA (occurrence: None)
  Receive Date: 20220728
  Receipt Date: 20220728
  Transmission Date: 20221027
  Serious: Yes (Other)
  Sender: FDA-Public Use
  Company Number: CA-ROCHE-3142396

PATIENT
  Age: 78 Year
  Sex: Male

DRUGS (2)
  1. PIRFENIDONE [Suspect]
     Active Substance: PIRFENIDONE
     Indication: Pulmonary fibrosis
     Dosage: DRUG DOSE FIRST ADMINISTERED IS 2403.0 MILLIGRAM
     Route: 048
  2. PIRFENIDONE [Suspect]
     Active Substance: PIRFENIDONE
     Indication: Idiopathic pulmonary fibrosis

REACTIONS (17)
  - Emphysema [Unknown]
  - Aortic arteriosclerosis [Unknown]
  - Pectus carinatum [Unknown]
  - Arteriosclerosis coronary artery [Unknown]
  - Total lung capacity decreased [Unknown]
  - Lung disorder [Unknown]
  - Intervertebral disc degeneration [Unknown]
  - Bronchiectasis [Unknown]
  - Pulmonary mass [Unknown]
  - Pulmonary hypertension [Unknown]
  - Pulmonary artery dilatation [Unknown]
  - Obstructive airways disorder [Unknown]
  - Aortic dilatation [Unknown]
  - Pulmonary valve incompetence [Unknown]
  - Pulmonary fibrosis [Unknown]
  - Product availability issue [Unknown]
  - Cardiomegaly [Unknown]
